FAERS Safety Report 21397539 (Version 3)
Quarter: 2022Q4

REPORT INFORMATION
  Report Type: Spontaneous
  Country: US (occurrence: US)
  Receive Date: 20220930
  Receipt Date: 20221125
  Transmission Date: 20230113
  Serious: Yes (Other)
  Sender: FDA-Public Use
  Company Number: US-JNJFOC-20220947436

PATIENT
  Age: 67 Year
  Sex: Male
  Weight: 81.720 kg

DRUGS (4)
  1. RISPERDAL CONSTA [Suspect]
     Active Substance: RISPERIDONE
     Indication: Product used for unknown indication
     Route: 065
  2. RISPERDAL CONSTA [Suspect]
     Active Substance: RISPERIDONE
  3. RISPERDAL CONSTA [Suspect]
     Active Substance: RISPERIDONE
  4. RISPERDAL CONSTA [Suspect]
     Active Substance: RISPERIDONE

REACTIONS (9)
  - Syphilis [Unknown]
  - Product packaging quantity issue [Unknown]
  - Underdose [Unknown]
  - Cognitive disorder [Unknown]
  - Product tampering [Unknown]
  - Product administration error [Unknown]
  - Therapeutic product effect decreased [Unknown]
  - Injection site haemorrhage [Unknown]
  - Headache [Unknown]

NARRATIVE: CASE EVENT DATE: 20221117
